FAERS Safety Report 7227523-4 (Version None)
Quarter: 2011Q1

REPORT INFORMATION
  Report Type: 
  Country: None (occurrence: None)
  Receive Date: 20110114
  Receipt Date: 20100917
  Transmission Date: 20110831
  Serious: Yes (Hospitalization)
  Sender: FDA-Public Use
  Company Number: PHHY2010IT63856

PATIENT
  Sex: Male

DRUGS (4)
  1. LESCOL [Suspect]
     Indication: HYPERLIPIDAEMIA
     Dosage: 40 MG, UNK
     Route: 048
     Dates: start: 20100527
  2. CYCLOSPORINE [Concomitant]
     Indication: IMMUNOSUPPRESSION
     Dosage: 175 MG, UNK
     Route: 048
     Dates: start: 20100502
  3. PREDNISONE [Concomitant]
     Indication: IMMUNOSUPPRESSION
     Dosage: 10 MG, UNK
     Route: 048
     Dates: start: 20100714
  4. CERTICAN [Suspect]
     Indication: HEART TRANSPLANT
     Dosage: 1 MG, UNK
     Route: 048
     Dates: start: 20100611

REACTIONS (4)
  - DYSPEPSIA [None]
  - ASTHENIA [None]
  - HIATUS HERNIA [None]
  - ACQUIRED OESOPHAGEAL WEB [None]
